FAERS Safety Report 5126424-5 (Version None)
Quarter: 2006Q4

REPORT INFORMATION
  Report Type: 
  Country: None (occurrence: None)
  Receive Date: 20061010
  Receipt Date: 20050919
  Transmission Date: 20070319
  Serious: No
  Sender: FDA-Public Use
  Company Number: 27488

PATIENT
  Age: 12 Year
  Sex: Female

DRUGS (3)
  1. MAXAIR [Suspect]
     Indication: ASTHMA
     Dosage: 1 RESPIRATORY, (INHALATION)
     Route: 055
     Dates: start: 20050919, end: 20050919
  2. SINGULAIR [Suspect]
  3. CLARINEX [Suspect]

REACTIONS (5)
  - DIZZINESS [None]
  - DRUG INEFFECTIVE [None]
  - HYPERTENSION [None]
  - PRURITUS [None]
  - URTICARIA [None]
